FAERS Safety Report 14900437 (Version 1)
Quarter: 2018Q2

REPORT INFORMATION
  Report Type: Spontaneous
  Country: DE (occurrence: DE)
  Receive Date: 20180516
  Receipt Date: 20180516
  Transmission Date: 20180711
  Serious: Yes (Other)
  Sender: FDA-Public Use
  Company Number: DE-TEVA-2018-DE-893287

PATIENT
  Age: 51 Year
  Sex: Female
  Weight: 105 kg

DRUGS (13)
  1. OXYCODONE [Suspect]
     Active Substance: OXYCODONE
     Indication: PAIN MANAGEMENT
     Route: 065
  2. DOXAZOSIN RETARD [Concomitant]
     Route: 065
  3. TARGIN [Concomitant]
     Active Substance: NALOXONE HYDROCHLORIDE\OXYCODONE HYDROCHLORIDE
     Route: 065
  4. METHOTREXAT [Concomitant]
     Active Substance: METHOTREXATE
     Route: 065
     Dates: start: 2009
  5. NOVAMINSULFON [Concomitant]
     Active Substance: METAMIZOLE
  6. ELONTRIL [Concomitant]
     Active Substance: BUPROPION HYDROCHLORIDE
     Route: 065
  7. L-THYROXIN [Concomitant]
     Active Substance: LEVOTHYROXINE SODIUM
     Route: 065
  8. FOLSAEURE [Concomitant]
     Active Substance: FOLIC ACID
     Route: 065
  9. HYDROCHLOROTHIAZID [Concomitant]
     Active Substance: HYDROCHLOROTHIAZIDE
     Route: 065
  10. EPROSARTAN [Concomitant]
     Active Substance: EPROSARTAN
     Route: 065
  11. REMIFEMIN PLUS [Suspect]
     Active Substance: BLACK COHOSH\HERBALS\HYPERICUM PERFORATUM
     Route: 065
  12. SPIRONOLACTON [Concomitant]
     Active Substance: SPIRONOLACTONE
     Route: 065
  13. LODOTRA [Concomitant]
     Active Substance: PREDNISONE
     Route: 065

REACTIONS (2)
  - Adenocarcinoma gastric [Not Recovered/Not Resolved]
  - Gastric ulcer haemorrhage [Not Recovered/Not Resolved]

NARRATIVE: CASE EVENT DATE: 20171213
